FAERS Safety Report 11139462 (Version 1)
Quarter: 2015Q2

REPORT INFORMATION
  Report Type: Spontaneous
  Country: US (occurrence: US)
  Receive Date: 20150527
  Receipt Date: 20150527
  Transmission Date: 20150821
  Serious: No
  Sender: FDA-Public Use
  Company Number: US-ENDO PHARMACEUTICALS INC.-SPLN20130070

PATIENT
  Sex: Female
  Weight: 18.8 kg

DRUGS (3)
  1. SUPPRELIN LA [Suspect]
     Active Substance: HISTRELIN ACETATE
     Route: 058
     Dates: start: 20120629
  2. SUPPRELIN LA [Suspect]
     Active Substance: HISTRELIN ACETATE
     Route: 058
     Dates: start: 20130620
  3. SUPPRELIN LA [Suspect]
     Active Substance: HISTRELIN ACETATE
     Indication: PRODUCT USED FOR UNKNOWN INDICATION
     Route: 058

REACTIONS (2)
  - Incorrect drug administration duration [Not Recovered/Not Resolved]
  - Procedural complication [Not Recovered/Not Resolved]

NARRATIVE: CASE EVENT DATE: 2013
